FAERS Safety Report 7935740-0 (Version None)
Quarter: 2011Q4

REPORT INFORMATION
  Report Type: 
  Country: None (occurrence: None)
  Receive Date: 20111123
  Receipt Date: 20111114
  Transmission Date: 20120403
  Serious: Yes (Hospitalization)
  Sender: FDA-Public Use
  Company Number: AU-JNJFOC-20111105781

PATIENT
  Sex: Female

DRUGS (3)
  1. TOPAMAX [Suspect]
     Indication: PRODUCT USED FOR UNKNOWN INDICATION
     Route: 048
     Dates: start: 20090515, end: 20091002
  2. TEGRETOL [Concomitant]
     Indication: COMPLEX PARTIAL SEIZURES
     Route: 065
  3. KEPPRA [Concomitant]
     Indication: COMPLEX PARTIAL SEIZURES
     Route: 065

REACTIONS (3)
  - ANXIETY [None]
  - ANHEDONIA [None]
  - DEPRESSION [None]
